FAERS Safety Report 5113714-5 (Version None)
Quarter: 2006Q3

REPORT INFORMATION
  Report Type: 
  Country: None (occurrence: None)
  Receive Date: 20060925
  Receipt Date: 20060915
  Transmission Date: 20061208
  Serious: Yes (Hospitalization)
  Sender: FDA-Public Use
  Company Number: 2006CG01507

PATIENT
  Age: 45 Year
  Sex: Female

DRUGS (1)
  1. ZOMIG [Suspect]
     Indication: MIGRAINE WITH AURA
     Route: 048
     Dates: start: 20060913, end: 20060913

REACTIONS (8)
  - CONVULSION [None]
  - FEELING COLD [None]
  - MOVEMENT DISORDER [None]
  - PARAESTHESIA [None]
  - PERIPHERAL COLDNESS [None]
  - SENSORY LOSS [None]
  - SPEECH DISORDER [None]
  - TREMOR [None]
